APPROVED DRUG PRODUCT: HYDROCODONE POLISTIREX AND CHLORPHENIRAMINE POLISTIREX
Active Ingredient: CHLORPHENIRAMINE POLISTIREX; HYDROCODONE POLISTIREX
Strength: EQ 8MG MALEATE/5ML;EQ 10MG BITARTRATE/5ML
Dosage Form/Route: SUSPENSION, EXTENDED RELEASE;ORAL
Application: A091632 | Product #001
Applicant: TRIS PHARMA INC
Approved: Oct 1, 2010 | RLD: No | RS: Yes | Type: RX